FAERS Safety Report 5955326-7 (Version None)
Quarter: 2008Q4

REPORT INFORMATION
  Report Type: 
  Country: None (occurrence: None)
  Receive Date: 20081031
  Receipt Date: 20080714
  Transmission Date: 20090506
  Serious: No
  Sender: FDA-Public Use
  Company Number: 2008PV036151

PATIENT
  Age: 47 Year
  Sex: Female

DRUGS (2)
  1. SYMLIN [Suspect]
     Indication: TYPE 1 DIABETES MELLITUS
     Dosage: 60 MCG; SC
     Route: 058
     Dates: start: 20050401
  2. NOVOLOG [Concomitant]

REACTIONS (5)
  - GLYCOSYLATED HAEMOGLOBIN INCREASED [None]
  - HYPERGLYCAEMIA [None]
  - INJECTION SITE HAEMATOMA [None]
  - STRESS [None]
  - WRONG TECHNIQUE IN DRUG USAGE PROCESS [None]
